FAERS Safety Report 5236400-X (Version None)
Quarter: 2007Q1

REPORT INFORMATION
  Report Type: 
  Country: None (occurrence: None)
  Receive Date: 20061208
  Receipt Date: 20060316
  Transmission Date: 20070707
  Serious: Yes (Other)
  Sender: FDA-Public Use
  Company Number: 2004UW05218

PATIENT
  Age: 77 Year
  Sex: Female
  Weight: 49.895 kg

DRUGS (7)
  1. CRESTOR [Suspect]
     Indication: HYPERCHOLESTEROLAEMIA
     Dosage: 10 MG PO
     Route: 048
     Dates: start: 20060201
  2. CRESTOR [Suspect]
     Indication: HYPERCHOLESTEROLAEMIA
     Dosage: 10 MG QD PO
     Route: 048
     Dates: start: 20031101
  3. SYNTHROID [Concomitant]
  4. EVISTA [Concomitant]
  5. TOPROL-XL [Concomitant]
  6. OSCAL [Concomitant]
  7. ACTONEL [Concomitant]

REACTIONS (4)
  - DYSPNOEA [None]
  - HYPOTRICHOSIS [None]
  - RASH PRURITIC [None]
  - TRICHORRHEXIS [None]
